FAERS Safety Report 12136622 (Version 4)
Quarter: 2016Q3

REPORT INFORMATION
  Report Type: Report from Study
  Country: GB (occurrence: GB)
  Receive Date: 20160302
  Receipt Date: 20160809
  Transmission Date: 20161109
  Serious: Yes (Hospitalization)
  Sender: FDA-Public Use
  Company Number: PHHO2016GB002904

PATIENT
  Age: 34 Year
  Sex: Male
  Weight: 79.6 kg

DRUGS (4)
  1. DABRAFENIB [Suspect]
     Active Substance: DABRAFENIB
     Dosage: UNK
     Route: 048
     Dates: start: 20160229
  2. DABRAFENIB [Suspect]
     Active Substance: DABRAFENIB
     Indication: NEOPLASM
     Dosage: UNK
     Route: 048
     Dates: start: 20151120, end: 20160220
  3. TRAMETINIB [Suspect]
     Active Substance: TRAMETINIB
     Dosage: UNK
     Route: 048
     Dates: start: 20160229
  4. TRAMETINIB [Suspect]
     Active Substance: TRAMETINIB
     Indication: NEOPLASM
     Dosage: UNK
     Route: 048
     Dates: start: 20151120, end: 20160220

REACTIONS (1)
  - Abdominal pain [Recovered/Resolved]

NARRATIVE: CASE EVENT DATE: 20160219
